FAERS Safety Report 20906484 (Version 1)
Quarter: 2022Q2

REPORT INFORMATION
  Report Type: Spontaneous
  Country: US (occurrence: US)
  Receive Date: 20220602
  Receipt Date: 20220602
  Transmission Date: 20220720
  Serious: No
  Sender: FDA-Public Use
  Company Number: US-PFIZER INC-202200784707

PATIENT
  Age: 79 Year
  Sex: Female

DRUGS (2)
  1. IBRANCE [Suspect]
     Active Substance: PALBOCICLIB
     Dosage: 75 MG, CYCLIC (3 WEEKS ON, 1 WEEK OFF, BUT ITS BEEN 2 WEEKS ON AND 2 WEEKS OFF FOR A WHILE)
  2. IBRANCE [Suspect]
     Active Substance: PALBOCICLIB
     Dosage: 75 MG, CYCLIC (2 WEEKS ON AND 2 WEEKS OFF)

REACTIONS (1)
  - Oropharyngeal discomfort [Unknown]
